FAERS Safety Report 20409093 (Version 2)
Quarter: 2022Q2

REPORT INFORMATION
  Report Type: Spontaneous
  Country: NL (occurrence: NL)
  Receive Date: 20220201
  Receipt Date: 20220411
  Transmission Date: 20220721
  Serious: Yes (Other)
  Sender: FDA-Public Use
  Company Number: NL-LRB-00748679

PATIENT
  Age: 51 Year
  Sex: Male
  Weight: 122 kg

DRUGS (6)
  1. SERTRALINE [Suspect]
     Active Substance: SERTRALINE HYDROCHLORIDE
     Indication: Post-traumatic stress disorder
     Dosage: 100 MILLIGRAM, BID, 2*D 1T
     Route: 065
     Dates: start: 201408
  2. QUETIAPINE TABLET FO  25MG / Brand name not specifiedQUETIAPINE TAB... [Concomitant]
     Indication: Product used for unknown indication
     Dosage: FILM-COATED TABLET, 25 MG (MILLIGRAMS),FILM-COATED TABLET, 25 MG (MILLIGRAMS), UNK
     Route: 065
  3. OXAZEPAM TABLET 10MG / Brand name not specifiedOXAZEPAM TABLET 10MG [Concomitant]
     Indication: Product used for unknown indication
     Dosage: TABLET, 10 MG (MILLIGRAM), UNK
     Route: 065
  4. PRAMIPEXOL TABLET 0,125MG (0,088MG BASE) / Brand name not specified... [Concomitant]
     Indication: Product used for unknown indication
     Dosage: 0,088MG, UNK
     Route: 065
  5. SIMVASTATIN [Concomitant]
     Active Substance: SIMVASTATIN
     Indication: Product used for unknown indication
     Dosage: FILM-COATED TABLET, 40 MG (MILLIGRAMS), UNK
     Route: 065
  6. LEVETIRACETAM TABLET FO  500MG / Brand name not specifiedLEVETIRACE... [Concomitant]
     Indication: Product used for unknown indication
     Dosage: FILM-COATED TABLET, 500 MG (MILLIGRAMS), UNK
     Route: 065

REACTIONS (2)
  - Hallucination, tactile [Not Recovered/Not Resolved]
  - Hallucination, visual [Not Recovered/Not Resolved]

NARRATIVE: CASE EVENT DATE: 20211227
